FAERS Safety Report 4506040-6 (Version None)
Quarter: 2004Q4

REPORT INFORMATION
  Report Type: 
  Country: None (occurrence: None)
  Receive Date: 20041025
  Receipt Date: 20031212
  Transmission Date: 20050328
  Serious: Yes (Other)
  Sender: FDA-Public Use
  Company Number: US-JNJFOC-20030800113

PATIENT
  Age: 55 Year
  Sex: Male
  Weight: 64.4108 kg

DRUGS (12)
  1. REMICADE [Suspect]
     Indication: CROHN'S DISEASE
     Dosage: SEE IMAGE
     Route: 042
     Dates: start: 20030729
  2. REMICADE [Suspect]
     Indication: CROHN'S DISEASE
     Dosage: SEE IMAGE
     Route: 042
     Dates: start: 20030812
  3. REMICADE [Suspect]
     Indication: CROHN'S DISEASE
     Dosage: SEE IMAGE
     Route: 042
     Dates: start: 20030909
  4. ASACOL [Concomitant]
  5. TYLENOL [Concomitant]
  6. SUDAFED PLUS (DECONAMINE) [Concomitant]
  7. MULTIVIT (MULTIVIT) [Concomitant]
  8. CIPRO [Concomitant]
  9. BENADRYL [Concomitant]
  10. TYLENOL ES (PARACETAMOL) [Concomitant]
  11. DECADRON [Concomitant]
  12. TAGAMET [Concomitant]

REACTIONS (6)
  - CROHN'S DISEASE [None]
  - HAEMOLYTIC ANAEMIA [None]
  - LEUKOCYTOSIS [None]
  - MALAISE [None]
  - PRURITUS [None]
  - URTICARIA [None]
